FAERS Safety Report 23859518 (Version 1)
Quarter: 2024Q2

REPORT INFORMATION
  Report Type: Spontaneous
  Country: US (occurrence: US)
  Receive Date: 20240515
  Receipt Date: 20240515
  Transmission Date: 20240716
  Serious: No
  Sender: FDA-Public Use
  Company Number: US-MYLANLABS-2024M1042810

PATIENT
  Age: 26 Year
  Sex: Male

DRUGS (1)
  1. TYRVAYA [Suspect]
     Active Substance: VARENICLINE TARTRATE
     Indication: Product used for unknown indication
     Dosage: UNK
     Route: 065
     Dates: start: 202403, end: 20240330

REACTIONS (1)
  - Nasal discomfort [Unknown]

NARRATIVE: CASE EVENT DATE: 20240301
